FAERS Safety Report 8239015-4 (Version None)
Quarter: 2012Q1

REPORT INFORMATION
  Report Type: 
  Country: None (occurrence: None)
  Receive Date: 20120327
  Receipt Date: 20120321
  Transmission Date: 20120608
  Serious: No
  Sender: FDA-Public Use
  Company Number: US-PFIZER INC-2012074535

PATIENT
  Sex: Female
  Weight: 79.4 kg

DRUGS (8)
  1. NEURONTIN [Suspect]
     Indication: BIPOLAR DISORDER
     Dosage: UNK
     Route: 048
  2. LUVOX [Concomitant]
     Indication: OBSESSIVE-COMPULSIVE DISORDER
     Dosage: 50 MG, 1X/DAY
  3. ATIVAN [Concomitant]
     Indication: GENERALISED ANXIETY DISORDER
     Dosage: 3 MG, 1X/DAY
  4. RESTORIL [Concomitant]
     Indication: INSOMNIA
     Dosage: UNK
  5. CLONIDINE [Concomitant]
     Dosage: UNK
  6. NEURONTIN [Suspect]
     Dosage: 600 MG, 2X/DAY
     Route: 048
  7. GEODON [Suspect]
     Dosage: 80 MG, 1X/DAY
     Route: 048
  8. GEODON [Suspect]
     Indication: BIPOLAR I DISORDER
     Dosage: UNK
     Route: 048

REACTIONS (5)
  - DIZZINESS [None]
  - BLOOD PRESSURE DECREASED [None]
  - FEELING ABNORMAL [None]
  - LETHARGY [None]
  - FATIGUE [None]
